FAERS Safety Report 23097771 (Version 4)
Quarter: 2023Q4

REPORT INFORMATION
  Report Type: Report from Study
  Country: US (occurrence: US)
  Receive Date: 20231023
  Receipt Date: 20231115
  Transmission Date: 20240109
  Serious: Yes (Hospitalization, Other)
  Sender: FDA-Public Use
  Company Number: US-002147023-NVSC2023US224012

PATIENT

DRUGS (4)
  1. OCTREOTIDE [Suspect]
     Active Substance: OCTREOTIDE
     Indication: Product used for unknown indication
     Dosage: UNK, QMO
     Route: 065
  2. OCTREOTIDE [Suspect]
     Active Substance: OCTREOTIDE
  3. OCTREOTIDE [Suspect]
     Active Substance: OCTREOTIDE
  4. AFINITOR [Suspect]
     Active Substance: EVEROLIMUS
     Indication: Carcinoid tumour of the stomach
     Dosage: 5 MG, OTHER (QD FOR THREE WEEKS, ONE WEEK OFF)
     Route: 048

REACTIONS (9)
  - Diabetic ketoacidosis [Unknown]
  - Hepatic neoplasm [Unknown]
  - Retching [Unknown]
  - Fatigue [Unknown]
  - Breast mass [Unknown]
  - Hernia [Unknown]
  - Vomiting [Unknown]
  - Diarrhoea [Unknown]
  - Abdominal pain [Unknown]
